FAERS Safety Report 21164636 (Version 1)
Quarter: 2022Q3

REPORT INFORMATION
  Report Type: Spontaneous
  Country: CN (occurrence: CN)
  Receive Date: 20220803
  Receipt Date: 20220803
  Transmission Date: 20221026
  Serious: Yes (Other)
  Sender: FDA-Public Use
  Company Number: None

PATIENT
  Age: 40 Year
  Sex: Female
  Weight: 51.5 kg

DRUGS (19)
  1. CYCLOPHOSPHAMIDE [Suspect]
     Active Substance: CYCLOPHOSPHAMIDE
     Indication: Breast cancer female
     Dosage: 0.8 G, QD  (SECOND CHEMOTHERAPY OF TC REGIMEN: 0.9% SODIUM CHLORIDE INJECTION 100ML + CYCLOPHOSPHAMI
     Route: 041
     Dates: start: 20220612, end: 20220612
  2. DOCETAXEL [Suspect]
     Active Substance: DOCETAXEL
     Indication: Breast cancer female
     Dosage: 20 MG, QD (SECOND CHEMOTHERAPY OF TC REGIMEN: 20 MG DOCETAXEL + 0.9% SODIUM CHLORIDE INJECTION 100 M
     Route: 041
     Dates: start: 20220612, end: 20220612
  3. DOCETAXEL [Suspect]
     Active Substance: DOCETAXEL
     Dosage: 80 MG, QD (SECOND CHEMOTHERAPY OF TC REGIMEN: DOCETAXEL 80MG + 0.9% SODIUM CHLORIDE INJECTION 250 ML
     Route: 041
     Dates: start: 20220612, end: 20220612
  4. SODIUM CHLORIDE [Suspect]
     Active Substance: SODIUM CHLORIDE
     Indication: Medication dilution
     Dosage: 100 ML, QD (SECOND CHEMOTHERAPY OF TC REGIMEN: 20 MG DOCETAXEL + 0.9% SODIUM CHLORIDE INJECTION 100
     Route: 041
     Dates: start: 20220612, end: 20220612
  5. SODIUM CHLORIDE [Suspect]
     Active Substance: SODIUM CHLORIDE
     Dosage: 100 ML, QD (SECOND CHEMOTHERAPY OF TC REGIMEN: 0.9% SODIUM CHLORIDE INJECTION 100ML + CYCLOPHOSPHAMI
     Route: 041
     Dates: start: 20220612, end: 20220612
  6. SODIUM CHLORIDE [Suspect]
     Active Substance: SODIUM CHLORIDE
     Dosage: 250 ML, QD (SECOND CHEMOTHERAPY OF TC REGIMEN: DOCETAXEL 80MG + 0.9% SODIUM CHLORIDE INJECTION 250 M
     Route: 041
     Dates: start: 20220612
  7. OMEPRAZOLE [Concomitant]
     Active Substance: OMEPRAZOLE
     Indication: Prophylaxis of nausea and vomiting
     Dosage: 40 MG, BID (DOSAGE FORM: ENTERIC-COATED CAPSULES)
     Route: 048
     Dates: start: 20220611
  8. OMEPRAZOLE [Concomitant]
     Active Substance: OMEPRAZOLE
     Dosage: 40 MG, BID (DOSAGE FORM: ENTERIC-COATED CAPSULES)
     Route: 048
     Dates: start: 20220611
  9. OMEPRAZOLE [Concomitant]
     Active Substance: OMEPRAZOLE
     Dosage: 40 MG (DOSAGE FORM: ENTERIC-COATED CAPSULES)
     Route: 048
     Dates: start: 20220612
  10. OMEPRAZOLE [Concomitant]
     Active Substance: OMEPRAZOLE
     Dosage: 40 MG (DOSAGE FORM: ENTERIC-COATED CAPSULES)
     Route: 048
     Dates: start: 20220612
  11. OMEPRAZOLE [Concomitant]
     Active Substance: OMEPRAZOLE
     Dosage: 40 MG (DOSAGE FORM: ENTERIC-COATED CAPSULES)
     Route: 048
     Dates: start: 20220613
  12. DEXAMETHASONE [Concomitant]
     Active Substance: DEXAMETHASONE
     Indication: Prophylaxis of nausea and vomiting
     Dosage: 7.5 MG, BID
     Route: 048
     Dates: start: 20220611
  13. DEXAMETHASONE [Concomitant]
     Active Substance: DEXAMETHASONE
     Dosage: 7.5 MG, BID
     Route: 048
     Dates: start: 20220611
  14. DEXAMETHASONE [Concomitant]
     Active Substance: DEXAMETHASONE
     Dosage: 7.5 MG
     Route: 048
     Dates: start: 20220612
  15. DEXAMETHASONE [Concomitant]
     Active Substance: DEXAMETHASONE
     Dosage: 7.5 MG
     Route: 048
     Dates: start: 20220612
  16. DEXAMETHASONE [Concomitant]
     Active Substance: DEXAMETHASONE
     Dosage: 7.5 MG, BID
     Route: 048
     Dates: start: 20220613
  17. DEXAMETHASONE [Concomitant]
     Active Substance: DEXAMETHASONE
     Indication: Prophylaxis of nausea and vomiting
     Dosage: 5 MG
     Route: 042
     Dates: start: 20220612
  18. TROPISETRON [Concomitant]
     Active Substance: TROPISETRON
     Indication: Prophylaxis of nausea and vomiting
     Dosage: 5 MG (TROPISETRON INJECTION 5 MG + 0.9% SODIUM CHLORIDE 5 ML)
     Route: 065
     Dates: start: 20220612
  19. SODIUM CHLORIDE [Concomitant]
     Active Substance: SODIUM CHLORIDE
     Indication: Medication dilution
     Dosage: 5 ML (TROPISETRON INJECTION 5 MG + 0.9% SODIUM CHLORIDE 5 ML)
     Route: 065
     Dates: start: 20220612

REACTIONS (6)
  - Sleep disorder [Recovering/Resolving]
  - White blood cell count decreased [Recovering/Resolving]
  - Neutrophil count decreased [Recovering/Resolving]
  - Nausea [Recovering/Resolving]
  - Vomiting [Recovering/Resolving]
  - Decreased appetite [Unknown]

NARRATIVE: CASE EVENT DATE: 20220612
